FAERS Safety Report 13428109 (Version 1)
Quarter: 2017Q2

REPORT INFORMATION
  Report Type: Spontaneous
  Country: US (occurrence: US)
  Receive Date: 20170411
  Receipt Date: 20170411
  Transmission Date: 20170830
  Serious: No
  Sender: FDA-Public Use
  Company Number: US-LNK INTERNATIONAL, INC.-1065280

PATIENT
  Sex: Female

DRUGS (1)
  1. DIPHENHYDRAMINE HCL 25 MG FC PINK MINITABS [Suspect]
     Active Substance: DIPHENHYDRAMINE HYDROCHLORIDE

REACTIONS (2)
  - Drug ineffective [None]
  - Product substitution issue [None]
